FAERS Safety Report 15546553 (Version 1)
Quarter: 2018Q4

REPORT INFORMATION
  Report Type: Spontaneous
  Country: US (occurrence: US)
  Receive Date: 20181024
  Receipt Date: 20181024
  Transmission Date: 20190205
  Serious: Yes (Other)
  Sender: FDA-Public Use
  Company Number: US-ASTELLAS-2018US045278

PATIENT
  Age: 19 Year
  Sex: Male

DRUGS (4)
  1. AMBISOME [Suspect]
     Active Substance: AMPHOTERICIN B
     Dosage: ADDITIONAL DOSES ON DAYS 14 AND 21 21 MG/KG TOTAL
     Route: 042
  2. AMBISOME [Suspect]
     Active Substance: AMPHOTERICIN B
     Dosage: 4 MG/KG, ONCE DAILY
     Route: 042
  3. AMBISOME [Suspect]
     Active Substance: AMPHOTERICIN B
     Indication: LEISHMANIASIS
     Route: 042
  4. AMBISOME [Suspect]
     Active Substance: AMPHOTERICIN B
     Dosage: 10 MG/KG, ONCE WEEKLY FOR 3 WEEKS
     Route: 042

REACTIONS (2)
  - Leishmaniasis [Recovered/Resolved]
  - Off label use [Recovered/Resolved]
